FAERS Safety Report 6676251-2 (Version None)
Quarter: 2010Q1

REPORT INFORMATION
  Report Type: 
  Country: None (occurrence: None)
  Receive Date: 20100331
  Receipt Date: 20091010
  Transmission Date: 20100710
  Serious: Yes (Hospitalization)
  Sender: FDA-Public Use
  Company Number: 2009232351

PATIENT
  Age: 72 Year
  Sex: Male

DRUGS (2)
  1. SUTENT [Suspect]
     Indication: BONE NEOPLASM MALIGNANT
     Dosage: 50 MG, 1X/DAY
     Dates: start: 20090507
  2. GLIPIZIDE (GLIPIZIDE) ONGOING [Concomitant]

REACTIONS (3)
  - ASTHENIA [None]
  - DIZZINESS [None]
  - PNEUMONIA [None]
